FAERS Safety Report 8427677-8 (Version None)
Quarter: 2012Q2

REPORT INFORMATION
  Report Type: 
  Country: None (occurrence: None)
  Receive Date: 20120611
  Receipt Date: 20120601
  Transmission Date: 20120825
  Serious: Yes (Death, Hospitalization)
  Sender: FDA-Public Use
  Company Number: NL-ACTELION-A-CH2012-66118

PATIENT
  Sex: Female
  Weight: 46 kg

DRUGS (11)
  1. SOLIFENACIN SUCCINATE [Concomitant]
  2. BUMETANIDE [Concomitant]
  3. PIPERACILLIN/TAZOBACTAM [Concomitant]
  4. DILTIAZEM [Concomitant]
  5. TRACLEER [Suspect]
     Dosage: 62.5 MG, BID
     Route: 048
     Dates: start: 20080801, end: 20080930
  6. SILDENAFIL [Concomitant]
  7. NADROPARIN [Concomitant]
  8. TRACLEER [Suspect]
     Indication: PULMONARY ARTERIAL HYPERTENSION
     Dosage: 125 MG, BID
     Route: 048
     Dates: start: 20081001, end: 20120513
  9. MORPHINE [Concomitant]
  10. VENTAVIS [Concomitant]
     Indication: PULMONARY ARTERIAL HYPERTENSION
  11. LEVOTHYROXINE SODIUM [Concomitant]

REACTIONS (5)
  - SEPSIS [None]
  - DIARRHOEA [None]
  - HYPONATRAEMIA [None]
  - PNEUMONIA [None]
  - MULTI-ORGAN FAILURE [None]
